FAERS Safety Report 9796960 (Version 6)
Quarter: 2015Q2

REPORT INFORMATION
  Report Type: Spontaneous
  Country: US (occurrence: US)
  Receive Date: 20140105
  Receipt Date: 20150622
  Transmission Date: 20150821
  Serious: Yes (Death, Life-Threatening, Hospitalization, Other)
  Sender: FDA-Public Use
  Company Number: US-MERCK-1401USA000343

PATIENT
  Sex: Female
  Weight: 70.3 kg

DRUGS (3)
  1. JANUMET [Suspect]
     Active Substance: METFORMIN HYDROCHLORIDE\SITAGLIPTIN PHOSPHATE
     Indication: TYPE 2 DIABETES MELLITUS
     Dosage: 50/500MG QD
     Route: 048
     Dates: start: 20110616, end: 20111122
  2. JANUMET [Suspect]
     Active Substance: METFORMIN HYDROCHLORIDE\SITAGLIPTIN PHOSPHATE
     Dosage: 50/500MG, BID
     Route: 048
     Dates: start: 20090311, end: 20111023
  3. JANUVIA [Suspect]
     Active Substance: SITAGLIPTIN PHOSPHATE
     Indication: TYPE 2 DIABETES MELLITUS
     Dosage: 100 MG, QD
     Route: 048
     Dates: start: 20070627, end: 20080708

REACTIONS (20)
  - Coronary angioplasty [Unknown]
  - Pulmonary granuloma [Unknown]
  - Biopsy breast [Unknown]
  - Inappropriate schedule of drug administration [Unknown]
  - Pancreatic carcinoma [Unknown]
  - Dehydration [Recovering/Resolving]
  - Cerebrovascular accident [Fatal]
  - Hyponatraemia [Recovering/Resolving]
  - Hypertension [Unknown]
  - Coronary artery disease [Unknown]
  - Neuropathy peripheral [Unknown]
  - Pulmonary calcification [Unknown]
  - Pancreatic stent placement [Unknown]
  - Renal failure [Unknown]
  - Biliary colic [Unknown]
  - Abdominal pain [Unknown]
  - Nephropathy [Unknown]
  - Renal cyst [Unknown]
  - Pneumobilia [Unknown]
  - Hysterectomy [Unknown]

NARRATIVE: CASE EVENT DATE: 2010
